FAERS Safety Report 6551451-0 (Version None)
Quarter: 2010Q1

REPORT INFORMATION
  Report Type: 
  Country: None (occurrence: None)
  Receive Date: 20100126
  Receipt Date: 20100119
  Transmission Date: 20100710
  Serious: Yes (Hospitalization)
  Sender: FDA-Public Use
  Company Number: FI-MPIJNJ-2010-00884

PATIENT

DRUGS (8)
  1. VELCADE [Suspect]
     Indication: MULTIPLE MYELOMA
     Dosage: 2.8 MG, UNK
     Route: 042
     Dates: start: 20091223, end: 20100107
  2. DEXAMETHASONE [Suspect]
     Indication: MULTIPLE MYELOMA
     Dosage: 40 MG, UNK
     Route: 048
     Dates: start: 20091223, end: 20100108
  3. OXYCONTIN [Concomitant]
     Dosage: 80 MG, UNK
  4. OXYNORM [Concomitant]
     Dosage: 10 MG, UNK
  5. KALCIPOS [Concomitant]
  6. ACYCLOVIR [Concomitant]
     Dosage: 400 MG, UNK
  7. KALINORM [Concomitant]
  8. COTRIM FORTE EU RHO [Concomitant]
     Dosage: 1 DF, UNK

REACTIONS (1)
  - INFECTION [None]
